FAERS Safety Report 17192165 (Version 2)
Quarter: 2020Q1

REPORT INFORMATION
  Report Type: Spontaneous
  Country: US (occurrence: US)
  Receive Date: 20191223
  Receipt Date: 20200114
  Transmission Date: 20200409
  Serious: Yes (Hospitalization)
  Sender: FDA-Public Use
  Company Number: US-MALLINCKRODT-T201904788

PATIENT
  Age: 58 Year
  Sex: Female

DRUGS (6)
  1. FUROSEMIDE. [Concomitant]
     Active Substance: FUROSEMIDE
     Indication: PRODUCT USED FOR UNKNOWN INDICATION
     Dosage: UNK, UNK
     Route: 065
  2. H.P. ACTHAR [Suspect]
     Active Substance: CORTICOTROPIN
     Indication: PULMONARY SARCOIDOSIS
     Dosage: 80 UNITS, 2 TO 3 TIMES  PER WEEK
     Route: 058
     Dates: start: 20190508, end: 201905
  3. H.P. ACTHAR [Suspect]
     Active Substance: CORTICOTROPIN
     Indication: ARTHRITIS
     Dosage: 80 MG, 2 TO 3 TIMES  PER WEEK
     Route: 058
     Dates: start: 20190511, end: 201911
  4. H.P. ACTHAR [Suspect]
     Active Substance: CORTICOTROPIN
     Dosage: 80 MG, 2 TO 3 TIMES  PER WEEK
     Route: 058
     Dates: start: 20191105
  5. MULTIVITAMIN [Concomitant]
     Active Substance: VITAMINS
     Indication: PRODUCT USED FOR UNKNOWN INDICATION
     Dosage: UNK, UNK
     Route: 065
  6. VITAMIN C [Concomitant]
     Active Substance: ASCORBIC ACID
     Indication: PRODUCT USED FOR UNKNOWN INDICATION
     Dosage: UNK, UNK
     Route: 065

REACTIONS (8)
  - Hyperhidrosis [Unknown]
  - Cardiac disorder [Unknown]
  - Malaise [Not Recovered/Not Resolved]
  - Constipation [Unknown]
  - Ocular hyperaemia [Not Recovered/Not Resolved]
  - Insomnia [Unknown]
  - Nasal congestion [Not Recovered/Not Resolved]
  - Skin discolouration [Not Recovered/Not Resolved]

NARRATIVE: CASE EVENT DATE: 2019
